FAERS Safety Report 9941034 (Version 1)
Quarter: 2014Q1

REPORT INFORMATION
  Report Type: Spontaneous
  Country: CH (occurrence: CH)
  Receive Date: 20140303
  Receipt Date: 20140303
  Transmission Date: 20141002
  Serious: Yes (Other)
  Sender: FDA-Public Use
  Company Number: CH-009507513-1402CHE011681

PATIENT
  Sex: Male

DRUGS (4)
  1. REMERON [Suspect]
     Indication: DEPRESSION
     Dosage: 15 MG ONCE DAILY IN THE EVENING
     Route: 048
     Dates: start: 201401, end: 2014
  2. REMERON [Suspect]
     Indication: ANXIETY
  3. CIPRALEX [Concomitant]
     Indication: DEPRESSION
     Dosage: 10 MG ONCE DAILY
     Route: 048
     Dates: start: 201401
  4. CIPRALEX [Concomitant]
     Indication: ANXIETY

REACTIONS (4)
  - Sleep terror [Recovered/Resolved]
  - Aggression [Recovered/Resolved]
  - Nightmare [Recovered/Resolved]
  - Agitation [Recovered/Resolved]
